FAERS Safety Report 13612086 (Version 4)
Quarter: 2017Q3

REPORT INFORMATION
  Report Type: Spontaneous
  Country: US (occurrence: US)
  Receive Date: 20170605
  Receipt Date: 20170810
  Transmission Date: 20171127
  Serious: Yes (Other)
  Sender: FDA-Public Use
  Company Number: US-LUNDBECK-DKLU2030575

PATIENT
  Age: 58 Year
  Sex: Male

DRUGS (3)
  1. NORTHERA [Suspect]
     Active Substance: DROXIDOPA
     Route: 048
     Dates: start: 20170428
  2. MIDODRINE [Suspect]
     Active Substance: MIDODRINE
     Indication: BLOOD PRESSURE MANAGEMENT
     Route: 065
  3. NORTHERA [Suspect]
     Active Substance: DROXIDOPA
     Indication: ORTHOSTATIC HYPOTENSION
     Dosage: OTHER AND TITRATING UP TO 300 MG 2 TID
     Route: 065
     Dates: start: 201704

REACTIONS (20)
  - Amyloidosis [Not Recovered/Not Resolved]
  - Malaise [Recovered/Resolved]
  - Dizziness [Unknown]
  - Headache [Unknown]
  - Fall [Unknown]
  - Depression [Unknown]
  - Coronary artery occlusion [Not Recovered/Not Resolved]
  - Gait disturbance [Unknown]
  - Peripheral swelling [Unknown]
  - Thermal burn [Unknown]
  - Blood pressure decreased [Unknown]
  - Dyspnoea [Unknown]
  - Blood pressure inadequately controlled [Not Recovered/Not Resolved]
  - Loss of consciousness [Unknown]
  - Diarrhoea [Unknown]
  - Fatigue [Unknown]
  - Drug dose omission [Unknown]
  - Contusion [Unknown]
  - Skin abrasion [Unknown]
  - Hypertension [Recovered/Resolved]

NARRATIVE: CASE EVENT DATE: 20170428
